FAERS Safety Report 21451050 (Version 1)
Quarter: 2022Q4

REPORT INFORMATION
  Report Type: Spontaneous
  Country: AU (occurrence: AU)
  Receive Date: 20221013
  Receipt Date: 20221013
  Transmission Date: 20230112
  Serious: Yes (Other)
  Sender: FDA-Public Use
  Company Number: AU-ALLERGAN-2232590US

PATIENT
  Sex: Male

DRUGS (19)
  1. OZURDEX [Suspect]
     Active Substance: DEXAMETHASONE
     Indication: Macular oedema
     Dosage: 0.7 MG, SINGLE
     Route: 031
     Dates: start: 202006, end: 202006
  2. OZURDEX [Suspect]
     Active Substance: DEXAMETHASONE
     Indication: Macular oedema
     Dosage: 0.7 MG, SINGLE
     Route: 031
     Dates: start: 202007, end: 202007
  3. OZURDEX [Suspect]
     Active Substance: DEXAMETHASONE
     Indication: Macular oedema
     Dosage: 0.7 MG, SINGLE
     Route: 031
     Dates: start: 202012, end: 202012
  4. OZURDEX [Suspect]
     Active Substance: DEXAMETHASONE
     Indication: Macular oedema
     Dosage: 0.7 MG, SINGLE
     Route: 031
     Dates: start: 202103, end: 202103
  5. OZURDEX [Suspect]
     Active Substance: DEXAMETHASONE
     Indication: Macular oedema
     Dosage: 0.7 MG, SINGLE
     Route: 031
     Dates: start: 202104, end: 202104
  6. OZURDEX [Suspect]
     Active Substance: DEXAMETHASONE
     Indication: Macular oedema
     Dosage: 0.7 MG, SINGLE
     Route: 031
     Dates: start: 202105, end: 202105
  7. OZURDEX [Suspect]
     Active Substance: DEXAMETHASONE
     Indication: Macular oedema
     Dosage: 0.7 MG, SINGLE
     Route: 031
     Dates: start: 202107, end: 202107
  8. OZURDEX [Suspect]
     Active Substance: DEXAMETHASONE
     Indication: Macular oedema
     Dosage: 0.7 MG, SINGLE
     Route: 031
     Dates: start: 202109, end: 202109
  9. OZURDEX [Suspect]
     Active Substance: DEXAMETHASONE
     Indication: Macular oedema
     Dosage: 0.7 MG, SINGLE
     Route: 031
     Dates: start: 202112, end: 202112
  10. OZURDEX [Suspect]
     Active Substance: DEXAMETHASONE
     Indication: Macular oedema
     Dosage: 0.7 MG, SINGLE
     Route: 031
     Dates: start: 202205, end: 202205
  11. EYLEA [Suspect]
     Active Substance: AFLIBERCEPT
     Indication: Macular oedema
     Dosage: UNK
     Dates: start: 202103
  12. EYLEA [Suspect]
     Active Substance: AFLIBERCEPT
     Dosage: UNK
     Dates: start: 202012
  13. EYLEA [Suspect]
     Active Substance: AFLIBERCEPT
     Dosage: UNK
     Dates: start: 202004
  14. EYLEA [Suspect]
     Active Substance: AFLIBERCEPT
     Dosage: UNK
     Dates: start: 202004
  15. EYLEA [Suspect]
     Active Substance: AFLIBERCEPT
     Dosage: UNK
     Dates: start: 202003
  16. EYLEA [Suspect]
     Active Substance: AFLIBERCEPT
     Dosage: UNK
     Dates: start: 201912
  17. EYLEA [Suspect]
     Active Substance: AFLIBERCEPT
     Dosage: UNK
     Dates: start: 201911
  18. EYLEA [Suspect]
     Active Substance: AFLIBERCEPT
     Dosage: UNK
     Dates: start: 201903
  19. DIAMOX SEQUELS [Concomitant]
     Active Substance: ACETAZOLAMIDE

REACTIONS (4)
  - Glaucoma [Unknown]
  - Cataract [Unknown]
  - Visual impairment [Unknown]
  - Ocular hypertension [Unknown]
